FAERS Safety Report 23276913 (Version 1)
Quarter: 2023Q4

REPORT INFORMATION
  Report Type: Spontaneous
  Country: CA (occurrence: CA)
  Receive Date: 20231208
  Receipt Date: 20231208
  Transmission Date: 20240110
  Serious: Yes (Other)
  Sender: FDA-Public Use
  Company Number: CA-FreseniusKabi-FK202320026

PATIENT
  Sex: Female

DRUGS (10)
  1. FOLIC ACID [Suspect]
     Active Substance: FOLIC ACID
     Indication: Product used for unknown indication
     Dosage: DOSAGE FORM: NOT SPECIFIED
     Route: 065
  2. AMITRIPTYLINE HYDROCHLORIDE\PERPHENAZINE [Suspect]
     Active Substance: AMITRIPTYLINE HYDROCHLORIDE\PERPHENAZINE
     Indication: Product used for unknown indication
     Dosage: FOA: NOT SPECIFIED?ROA: ORAL?125MG
     Route: 048
  3. CIPRO [Suspect]
     Active Substance: CIPROFLOXACIN HYDROCHLORIDE
     Indication: Crohn^s disease
     Dosage: FOA: NOT SPECIFIED?ROA: UNKNOWN
  4. FLAGYL [Suspect]
     Active Substance: METRONIDAZOLE\METRONIDAZOLE HYDROCHLORIDE
     Indication: Crohn^s disease
     Dosage: FOA: NOT SPECIFIED?ROA: UNKNOWN
  5. HUMIRA [Suspect]
     Active Substance: ADALIMUMAB
     Indication: Crohn^s disease
     Dosage: ROA: SUBCUTANEOUS
     Route: 058
  6. METHOTREXATE [Suspect]
     Active Substance: METHOTREXATE
     Indication: Crohn^s disease
     Dosage: FOA: NOT SPECIFIED?ROA: ORAL?7.5MG
     Route: 048
  7. RABEPRAZOLE SODIUM [Suspect]
     Active Substance: RABEPRAZOLE SODIUM
     Indication: Product used for unknown indication
     Dosage: FOA: TABLET (ENTERIC-COATED)?ROA: ORAL?20MG
     Route: 048
  8. PENTASA [Suspect]
     Active Substance: MESALAMINE
     Indication: Product used for unknown indication
     Dosage: FOA: NOT SPECIFIED?ROA: UNKNOWN?1 DOSAGE FORM ?1 EVERY 1 DAY
  9. ROBAXIN [Suspect]
     Active Substance: METHOCARBAMOL
     Indication: Product used for unknown indication
     Dosage: FOA: TABLET?ROA: ORAL?500MG
     Route: 048
  10. VENLAFAXINE HYDROCHLORIDE [Suspect]
     Active Substance: VENLAFAXINE HYDROCHLORIDE
     Indication: Product used for unknown indication
     Dosage: ROA: ORAL?150MG?1 EVERY 1 DAY
     Route: 048

REACTIONS (8)
  - Anal fissure haemorrhage [Unknown]
  - Anal fistula [Unknown]
  - Cystitis [Unknown]
  - Drug ineffective [Unknown]
  - Fistula discharge [Unknown]
  - Impaired quality of life [Unknown]
  - Impaired work ability [Unknown]
  - Pain [Unknown]
